FAERS Safety Report 8134816-5 (Version None)
Quarter: 2012Q1

REPORT INFORMATION
  Report Type: 
  Country: None (occurrence: None)
  Receive Date: 20120214
  Receipt Date: 20120207
  Transmission Date: 20120608
  Serious: Yes (Hospitalization)
  Sender: FDA-Public Use
  Company Number: US-ELI_LILLY_AND_COMPANY-US201202002509

PATIENT
  Sex: Male

DRUGS (4)
  1. HUMULIN N [Suspect]
     Indication: DIABETES MELLITUS
     Dosage: 40 U, OTHER
     Dates: start: 20020101
  2. HUMALOG MIX 75/25 [Suspect]
     Dosage: 25 U, QD
  3. HUMULIN N [Suspect]
     Dosage: 20 U, OTHER
  4. HUMALOG MIX 75/25 [Suspect]
     Indication: DIABETES MELLITUS
     Dosage: 40 U, QD
     Dates: start: 20020101

REACTIONS (4)
  - RENAL DISORDER [None]
  - AMNESIA [None]
  - HYPOGLYCAEMIC SEIZURE [None]
  - HYPOGLYCAEMIC UNCONSCIOUSNESS [None]
